FAERS Safety Report 25057613 (Version 1)
Quarter: 2025Q1

REPORT INFORMATION
  Report Type: Report from Study
  Country: CO (occurrence: CO)
  Receive Date: 20250310
  Receipt Date: 20250310
  Transmission Date: 20250409
  Serious: Yes (Other)
  Sender: JOHNSON AND JOHNSON
  Company Number: CO-JNJFOC-20250305096

PATIENT
  Age: 62 Year
  Sex: Male
  Weight: 75 kg

DRUGS (1)
  1. DARZALEX [Suspect]
     Active Substance: DARATUMUMAB
     Indication: Plasma cell myeloma
     Route: 042
     Dates: start: 20240710

REACTIONS (2)
  - Leukopenia [Unknown]
  - Anaemia [Unknown]

NARRATIVE: CASE EVENT DATE: 20250228
